FAERS Safety Report 16744844 (Version 2)
Quarter: 2019Q3

REPORT INFORMATION
  Report Type: Spontaneous
  Country: FR (occurrence: FR)
  Receive Date: 20190827
  Receipt Date: 20190912
  Transmission Date: 20191005
  Serious: Yes (Hospitalization)
  Sender: FDA-Public Use
  Company Number: FR-JNJFOC-20190829117

PATIENT
  Age: 50 Year
  Sex: Male

DRUGS (5)
  1. ESOMEPRAZOLE. [Suspect]
     Active Substance: ESOMEPRAZOLE MAGNESIUM
     Indication: CELLULITIS
     Dosage: UNK
     Route: 048
     Dates: start: 201607, end: 201607
  2. PARACETAMOL [Suspect]
     Active Substance: ACETAMINOPHEN
     Indication: CELLULITIS
     Dosage: UNK
     Route: 048
     Dates: start: 201607, end: 201607
  3. AUGMENTIN [Suspect]
     Active Substance: AMOXICILLIN\CLAVULANATE POTASSIUM
     Indication: CELLULITIS
     Dosage: UNK
     Route: 048
     Dates: start: 201607, end: 201607
  4. BIPROFENID [Suspect]
     Active Substance: KETOPROFEN
     Indication: CELLULITIS
     Dosage: UNK
     Route: 048
     Dates: start: 201607, end: 201607
  5. TRAMADOL HYDROCHLORIDE. [Suspect]
     Active Substance: TRAMADOL HYDROCHLORIDE
     Indication: CELLULITIS
     Dosage: UNK
     Route: 048
     Dates: start: 201607, end: 201607

REACTIONS (4)
  - Hepatitis cholestatic [Recovered/Resolved]
  - Jaundice [Recovered/Resolved]
  - Hepatocellular injury [Recovered/Resolved]
  - Pruritus [Recovered/Resolved]

NARRATIVE: CASE EVENT DATE: 20160725
